FAERS Safety Report 8130332-5 (Version None)
Quarter: 2012Q1

REPORT INFORMATION
  Report Type: 
  Country: None (occurrence: None)
  Receive Date: 20120210
  Receipt Date: 20120206
  Transmission Date: 20120608
  Serious: Yes (Other)
  Sender: FDA-Public Use
  Company Number: PHHY2012FR010642

PATIENT
  Sex: Male

DRUGS (3)
  1. SANDIMMUNE [Suspect]
     Dosage: UNK UKN, UNK
  2. MYCOPHENOLATE MOFETIL (CELLCEPT) [Concomitant]
     Dosage: UNK UKN, UNK
  3. NEORAL [Suspect]
     Dosage: UNK UKN, UNK

REACTIONS (1)
  - TRANSPLANT REJECTION [None]
